FAERS Safety Report 13109256 (Version 2)
Quarter: 2017Q1

REPORT INFORMATION
  Report Type: Spontaneous
  Country: US (occurrence: US)
  Receive Date: 20170112
  Receipt Date: 20170131
  Transmission Date: 20170428
  Serious: No
  Sender: FDA-Public Use
  Company Number: US-009507513-1701USA004190

PATIENT
  Age: 50 Year
  Sex: Female

DRUGS (4)
  1. CLOMID [Concomitant]
     Active Substance: CLOMIPHENE CITRATE
  2. FOLLISTIM [Suspect]
     Active Substance: FOLLITROPIN
     Dosage: DOSE: 75 UNITS
     Route: 058
     Dates: start: 20170106
  3. PROZAC [Concomitant]
     Active Substance: FLUOXETINE HYDROCHLORIDE
  4. FOLLISTIM [Suspect]
     Active Substance: FOLLITROPIN
     Indication: OVULATION INDUCTION
     Dosage: STRENGTH: 650 INTERNATIONAL UNITS PER 0.780 ML, DOSE: 75 UNITS
     Route: 058
     Dates: start: 201611

REACTIONS (1)
  - Incorrect product storage [Unknown]
